FAERS Safety Report 5934256-0 (Version None)
Quarter: 2008Q4

REPORT INFORMATION
  Report Type: 
  Country: None (occurrence: None)
  Receive Date: 20081028
  Receipt Date: 20081028
  Transmission Date: 20090506
  Serious: Yes (Hospitalization)
  Sender: FDA-Public Use
  Company Number: None

PATIENT
  Sex: Male
  Weight: 81.4 kg

DRUGS (5)
  1. TEMOZOLOMIDE [Suspect]
     Dosage: 750 MG
  2. DEXAMETHASONE 0.5MG TAB [Concomitant]
  3. MIDAZOLAM HCL [Concomitant]
  4. PHENYTOIN [Concomitant]
  5. RANITIDINE [Concomitant]

REACTIONS (1)
  - PLATELET COUNT DECREASED [None]
